FAERS Safety Report 6730243-3 (Version None)
Quarter: 2010Q2

REPORT INFORMATION
  Report Type: 
  Country: None (occurrence: None)
  Receive Date: 20100518
  Receipt Date: 20100508
  Transmission Date: 20101027
  Serious: Yes (Life-Threatening, Hospitalization)
  Sender: FDA-Public Use
  Company Number: US-PFIZER INC-2010048242

PATIENT
  Sex: Female
  Weight: 92 kg

DRUGS (18)
  1. IRINOTECAN HCL [Suspect]
     Indication: COLORECTAL CANCER
     Dosage: 180 MG/M2 (373 MG)
     Route: 042
     Dates: start: 20100105
  2. FLUOROURACIL [Suspect]
     Indication: COLORECTAL CANCER
     Dosage: 828 MG
     Route: 040
     Dates: start: 20100105
  3. FLUOROURACIL [Suspect]
     Dosage: 4968 MG
     Route: 041
  4. FOLINIC ACID [Suspect]
     Indication: COLORECTAL CANCER
     Dosage: UNK
     Dates: start: 20100105
  5. AVASTIN [Suspect]
     Indication: COLORECTAL CANCER
     Dosage: 5 MG/KG, 458 MG/DOSE
     Route: 042
     Dates: start: 20100105
  6. PREDNISONE [Concomitant]
  7. DEXAMETHASONE [Concomitant]
     Dosage: 8 MG
  8. ACETYLSALICYLIC ACID [Concomitant]
  9. IBUPROFEN [Concomitant]
  10. METOPROLOL [Concomitant]
  11. SIMVASTATIN [Concomitant]
  12. COMPAZINE [Concomitant]
  13. OMEPRAZOLE [Concomitant]
  14. LOVENOX [Concomitant]
  15. WARFARIN SODIUM [Concomitant]
  16. CALCIUM [Concomitant]
  17. GLUCOSAMINE [Concomitant]
  18. HYDROCODONE [Concomitant]

REACTIONS (13)
  - ABDOMINAL PAIN [None]
  - ABDOMINAL PAIN UPPER [None]
  - ASTHENIA [None]
  - CHILLS [None]
  - CONFUSIONAL STATE [None]
  - DECREASED APPETITE [None]
  - DEHYDRATION [None]
  - ENTERITIS [None]
  - FAILURE TO THRIVE [None]
  - FATIGUE [None]
  - FEBRILE NEUTROPENIA [None]
  - LEUKOPENIA [None]
  - PYREXIA [None]
